FAERS Safety Report 18222041 (Version 1)
Quarter: 2020Q3

REPORT INFORMATION
  Report Type: Spontaneous
  Country: US (occurrence: US)
  Receive Date: 20200902
  Receipt Date: 20200902
  Transmission Date: 20201103
  Serious: No
  Sender: FDA-Public Use
  Company Number: None

PATIENT
  Age: 73 Year
  Sex: Female
  Weight: 69.75 kg

DRUGS (15)
  1. GLUCOSAMINE CHONDROTIN [Concomitant]
     Active Substance: CHONDROITIN SULFATE (BOVINE)\GLUCOSAMINE SULFATE
  2. LEVOTHYROXINE. [Concomitant]
     Active Substance: LEVOTHYROXINE
  3. VITAMIN B [Concomitant]
     Active Substance: VITAMIN B
  4. VITAMIN C [Concomitant]
     Active Substance: ASCORBIC ACID
  5. VITAMIN D [Concomitant]
     Active Substance: VITAMIN D NOS
  6. NIACIN. [Concomitant]
     Active Substance: NIACIN
  7. RISH OIL [Concomitant]
  8. MSM [Concomitant]
     Active Substance: DIMETHYL SULFONE
  9. C KELP [Concomitant]
  10. TAMOXIFEN [Suspect]
     Active Substance: TAMOXIFEN
     Indication: BREAST CANCER
     Dosage: ?          QUANTITY:1 TABLET(S);?
     Route: 048
  11. LISINOPRIL. [Concomitant]
     Active Substance: LISINOPRIL
  12. MAGNESIUM [Concomitant]
     Active Substance: MAGNESIUM
  13. TURMERIC [Concomitant]
     Active Substance: HERBALS\TURMERIC
  14. RED YEAST RICE [Concomitant]
     Active Substance: DIETARY SUPPLEMENT
  15. PLANT STEROL [Concomitant]

REACTIONS (3)
  - Photopsia [None]
  - Vitreous detachment [None]
  - Vitreous floaters [None]

NARRATIVE: CASE EVENT DATE: 20200729
